FAERS Safety Report 9886678 (Version 2)
Quarter: 2014Q3

REPORT INFORMATION
  Report Type: Spontaneous
  Country: US (occurrence: US)
  Receive Date: 20140210
  Receipt Date: 20140722
  Transmission Date: 20150326
  Serious: Yes (Hospitalization)
  Sender: FDA-Public Use
  Company Number: US-009507513-1402USA004245

PATIENT
  Sex: Female

DRUGS (1)
  1. NUVARING [Suspect]
     Active Substance: ETHINYL ESTRADIOL\ETONOGESTREL
     Indication: MENORRHAGIA
     Dosage: INSERT 1 RING, LEAVE IN X 3 WEEKS, REMOVE FOR 1 WEEK
     Route: 067
     Dates: start: 2007, end: 20110511

REACTIONS (12)
  - Gastrooesophageal reflux disease [Unknown]
  - Accident [Unknown]
  - Musculoskeletal stiffness [Recovering/Resolving]
  - Menorrhagia [Unknown]
  - Sinusitis [Unknown]
  - Intracranial venous sinus thrombosis [Recovered/Resolved with Sequelae]
  - Protein S decreased [Recovered/Resolved]
  - Alopecia [Unknown]
  - Off label use [Recovered/Resolved]
  - Menstruation irregular [Unknown]
  - Head injury [Unknown]
  - Irritable bowel syndrome [Unknown]

NARRATIVE: CASE EVENT DATE: 2007
